FAERS Safety Report 4767587-0 (Version None)
Quarter: 2005Q4

REPORT INFORMATION
  Report Type: 
  Country: None (occurrence: None)
  Receive Date: 20050913
  Receipt Date: 20050901
  Transmission Date: 20060501
  Serious: Yes (Hospitalization)
  Sender: FDA-Public Use
  Company Number: FR-BRISTOL-MYERS SQUIBB COMPANY-13102678

PATIENT
  Age: 53 Year
  Sex: Female

DRUGS (4)
  1. VASTEN TABS 40 MG [Suspect]
     Route: 048
     Dates: start: 20000615
  2. LASILIX [Suspect]
     Dosage: TABLETS
     Route: 048
     Dates: start: 20000615
  3. PREVISCAN [Suspect]
     Dosage: TABLETS
     Route: 048
     Dates: start: 20050215
  4. OMEPRAZOLE [Suspect]
     Dosage: CAPSULES
     Route: 048
     Dates: start: 20000615

REACTIONS (3)
  - ABDOMINAL PAIN [None]
  - INTERNATIONAL NORMALISED RATIO INCREASED [None]
  - RECTAL HAEMORRHAGE [None]
